FAERS Safety Report 6150305-1 (Version None)
Quarter: 2009Q2

REPORT INFORMATION
  Report Type: 
  Country: None (occurrence: None)
  Receive Date: 20090408
  Receipt Date: 20090408
  Transmission Date: 20091009
  Serious: No
  Sender: FDA-Public Use
  Company Number: None

PATIENT
  Age: 59 Year
  Sex: Female
  Weight: 88.4514 kg

DRUGS (3)
  1. METFORMIN HCL [Suspect]
     Indication: BLOOD GLUCOSE INCREASED
     Dosage: 1 PILL BREAKFAST PO 2 PILLS DINNER PO
     Route: 048
     Dates: start: 20060128, end: 20090406
  2. METFORMIN HCL [Suspect]
     Indication: INSULIN RESISTANCE
     Dosage: 1 PILL BREAKFAST PO 2 PILLS DINNER PO
     Route: 048
     Dates: start: 20060128, end: 20090406
  3. METFORMIN HCL [Suspect]
     Indication: WEIGHT INCREASED
     Dosage: 1 PILL BREAKFAST PO 2 PILLS DINNER PO
     Route: 048
     Dates: start: 20060128, end: 20090406

REACTIONS (5)
  - BLOOD GLUCOSE INCREASED [None]
  - FEAR [None]
  - PRODUCT CONTAMINATION [None]
  - WEIGHT DECREASED [None]
  - WEIGHT INCREASED [None]
